FAERS Safety Report 6969470-9 (Version None)
Quarter: 2010Q3

REPORT INFORMATION
  Report Type: 
  Country: None (occurrence: None)
  Receive Date: 20100902
  Receipt Date: 20100817
  Transmission Date: 20110219
  Serious: Yes (Hospitalization, Other)
  Sender: FDA-Public Use
  Company Number: ACO_01815_2010

PATIENT
  Sex: Female

DRUGS (8)
  1. AMPYRA [Suspect]
     Indication: PRODUCT USED FOR UNKNOWN INDICATION
     Dosage: 10 MG BID ORAL
     Route: 048
     Dates: start: 20100730, end: 20100809
  2. PAXIL [Concomitant]
  3. DARVOCET [Concomitant]
  4. BACLOFEN [Concomitant]
  5. COPAXONE [Concomitant]
  6. POTASSIUM [Concomitant]
  7. ARICEPT [Concomitant]
  8. WATER PILL (UNKNOWN) [Concomitant]

REACTIONS (8)
  - ABASIA [None]
  - ADVERSE DRUG REACTION [None]
  - APHASIA [None]
  - BLINDNESS [None]
  - CONVULSION [None]
  - DIZZINESS [None]
  - DYSMORPHISM [None]
  - MUSCLE CONTRACTIONS INVOLUNTARY [None]
